FAERS Safety Report 8187201-4 (Version None)
Quarter: 2012Q1

REPORT INFORMATION
  Report Type: 
  Country: None (occurrence: None)
  Receive Date: 20120216
  Receipt Date: 20111017
  Transmission Date: 20120608
  Serious: Yes (Hospitalization)
  Sender: FDA-Public Use
  Company Number: 20111010CINRY2359

PATIENT
  Age: 28 Year
  Sex: Female

DRUGS (2)
  1. CINRYZE [Suspect]
     Indication: HEREDITARY ANGIOEDEMA
     Dosage: (1000 IU, 1 IN 3 D, INTRAVENOUS
     Route: 042
     Dates: start: 20080101
  2. CINRYZE [Suspect]
     Indication: PROPHYLAXIS
     Dosage: (1000 IU, 1 IN 3 D, INTRAVENOUS
     Route: 042
     Dates: start: 20080101

REACTIONS (1)
  - HEREDITARY ANGIOEDEMA [None]
